FAERS Safety Report 12390110 (Version 1)
Quarter: 2016Q2

REPORT INFORMATION
  Report Type: Spontaneous
  Country: US (occurrence: US)
  Receive Date: 20160520
  Receipt Date: 20160520
  Transmission Date: 20160815
  Serious: No
  Sender: FDA-Public Use
  Company Number: US-MDT-ADR-2016-00269

PATIENT
  Age: 62 Year
  Sex: Male

DRUGS (5)
  1. AMBIEN [Suspect]
     Active Substance: ZOLPIDEM TARTRATE
  2. NYSTATIN. [Suspect]
     Active Substance: NYSTATIN
     Route: 061
  3. PRILOSEC [Suspect]
     Active Substance: OMEPRAZOLE MAGNESIUM
  4. LIORESAL [Suspect]
     Active Substance: BACLOFEN
     Dosage: 799.9MCG/DAY
     Route: 037
  5. TESTOSTERONE. [Suspect]
     Active Substance: TESTOSTERONE

REACTIONS (1)
  - Muscle spasticity [Unknown]

NARRATIVE: CASE EVENT DATE: 201501
